FAERS Safety Report 14407717 (Version 1)
Quarter: 2018Q1

REPORT INFORMATION
  Report Type: Spontaneous
  Country: AU (occurrence: US)
  Receive Date: 20180117
  Receipt Date: 20180117
  Transmission Date: 20180509
  Serious: Yes (Other)
  Sender: FDA-Public Use
  Company Number: None

PATIENT
  Age: 56 Year
  Sex: Female
  Weight: 65 kg

DRUGS (3)
  1. THYROXIN [Concomitant]
     Active Substance: LEVOTHYROXINE
  2. MIRENA [Suspect]
     Active Substance: LEVONORGESTREL
  3. MULTI VITAMIN [Concomitant]
     Active Substance: VITAMINS

REACTIONS (7)
  - Product quality issue [None]
  - Angiopathy [None]
  - Weight increased [None]
  - Migraine [None]
  - Vaginal infection [None]
  - Inflammation [None]
  - Dermatitis [None]

NARRATIVE: CASE EVENT DATE: 20180117
